FAERS Safety Report 6062619-4 (Version None)
Quarter: 2009Q1

REPORT INFORMATION
  Report Type: 
  Country: None (occurrence: None)
  Receive Date: 20090203
  Receipt Date: 20090128
  Transmission Date: 20090719
  Serious: Yes (Death, Life-Threatening, Hospitalization)
  Sender: FDA-Public Use
  Company Number: JP-BAYER-200910176BYL

PATIENT
  Age: 59 Year
  Sex: Male
  Weight: 68 kg

DRUGS (17)
  1. NEXAVAR [Suspect]
     Indication: RENAL CELL CARCINOMA STAGE IV
     Dosage: TOTAL DAILY DOSE: 800 MG  UNIT DOSE: 200 MG
     Route: 048
     Dates: start: 20081022
  2. NEXAVAR [Suspect]
     Dosage: TOTAL DAILY DOSE: 400 MG  UNIT DOSE: 200 MG
     Route: 048
     Dates: start: 20081110, end: 20081230
  3. NEXAVAR [Suspect]
     Dosage: TOTAL DAILY DOSE: 800 MG  UNIT DOSE: 200 MG
     Route: 048
     Dates: start: 20090113, end: 20090116
  4. LOXONIN [Concomitant]
     Route: 048
     Dates: start: 20081022
  5. MUCOSTA [Concomitant]
     Route: 048
     Dates: start: 20081022
  6. PAXIL [Concomitant]
     Dosage: TOTAL DAILY DOSE: 10 MG  UNIT DOSE: 10 MG
     Route: 048
  7. AMOBAN [Concomitant]
     Dosage: TOTAL DAILY DOSE: 7.5 MG  UNIT DOSE: 7.5 MG
     Route: 048
  8. OXYCONTIN [Concomitant]
     Dosage: TOTAL DAILY DOSE: 80 MG  UNIT DOSE: 40 MG
     Route: 048
  9. OXINORM [Concomitant]
     Indication: PAIN MANAGEMENT
     Dosage: UNIT DOSE: 5 MG
     Route: 048
  10. MAGMITT [Concomitant]
     Dosage: TOTAL DAILY DOSE: 990 MG  UNIT DOSE: 330 MG
     Route: 048
  11. PURSENNID [Concomitant]
     Indication: CONSTIPATION
     Dosage: UNIT DOSE: 12 MG
     Route: 048
  12. LAXOBERON [Concomitant]
     Indication: CONSTIPATION
     Route: 048
  13. NOVAMIN [Concomitant]
     Dosage: TOTAL DAILY DOSE: 15 MG  UNIT DOSE: 5 MG
     Route: 048
  14. DOMPERIDONE [Concomitant]
     Dosage: TOTAL DAILY DOSE: 30 MG  UNIT DOSE: 10 MG
     Route: 048
  15. DUROTEP [Concomitant]
     Dosage: UNIT DOSE: 4.2 MG
     Route: 062
  16. RAYNANON [Concomitant]
     Route: 054
  17. LECICARBON [Concomitant]
     Route: 054

REACTIONS (4)
  - CEREBRAL INFARCTION [None]
  - HYPERCALCAEMIA [None]
  - HYPERTENSION [None]
  - PALMAR-PLANTAR ERYTHRODYSAESTHESIA SYNDROME [None]
